FAERS Safety Report 5523227-4 (Version None)
Quarter: 2007Q4

REPORT INFORMATION
  Report Type: 
  Country: None (occurrence: None)
  Receive Date: 20071121
  Receipt Date: 20071119
  Transmission Date: 20080405
  Serious: Yes (Death, Other)
  Sender: FDA-Public Use
  Company Number: IT-BRISTOL-MYERS SQUIBB COMPANY-13989082

PATIENT
  Age: 70 Year
  Sex: Female

DRUGS (2)
  1. IFOSFAMIDE [Suspect]
     Indication: SARCOMA
     Dosage: 1 DOSAGE FORM = 3 G/M2. ON DAYS 1-3
  2. EPIRUBICIN [Suspect]
     Indication: SARCOMA
     Dosage: ON DAY 1 AND 2

REACTIONS (3)
  - CIRCULATORY COLLAPSE [None]
  - ENCEPHALOPATHY [None]
  - OLIGURIA [None]
